FAERS Safety Report 11295407 (Version 1)
Quarter: 2015Q3

REPORT INFORMATION
  Report Type: Spontaneous
  Country: US (occurrence: None)
  Receive Date: 20150722
  Receipt Date: 20150722
  Transmission Date: 20151125
  Serious: Yes (Hospitalization)
  Sender: FDA-Public Use
  Company Number: None

PATIENT
  Age: 67 Year
  Sex: Male
  Weight: 82.7 kg

DRUGS (1)
  1. NIACIN (SLO-NIACIN) [Suspect]
     Active Substance: DIETARY SUPPLEMENT
     Indication: HYPERLIPIDAEMIA
     Route: 048
     Dates: start: 20111222, end: 20120724

REACTIONS (12)
  - Hypokalaemia [None]
  - Hyponatraemia [None]
  - Hypertriglyceridaemia [None]
  - Rhabdomyolysis [None]
  - Hepatitis alcoholic [None]
  - Aspartate aminotransferase increased [None]
  - Hyperglycaemia [None]
  - Metabolic alkalosis [None]
  - Blood creatine phosphokinase increased [None]
  - Acute kidney injury [None]
  - Liver function test abnormal [None]
  - Carbon dioxide decreased [None]

NARRATIVE: CASE EVENT DATE: 20120819
